FAERS Safety Report 18383133 (Version 13)
Quarter: 2024Q2

REPORT INFORMATION
  Report Type: Spontaneous
  Country: US (occurrence: US)
  Receive Date: 20201014
  Receipt Date: 20240416
  Transmission Date: 20240716
  Serious: Yes (Other)
  Sender: FDA-Public Use
  Company Number: US-PFIZER INC-2020395108

PATIENT
  Age: 59 Year
  Sex: Female

DRUGS (4)
  1. XELJANZ [Suspect]
     Active Substance: TOFACITINIB CITRATE
     Indication: Alopecia
     Dosage: 10 MG
     Dates: start: 20201105
  2. XELJANZ [Suspect]
     Active Substance: TOFACITINIB CITRATE
     Dosage: 5 MG
  3. XELJANZ [Suspect]
     Active Substance: TOFACITINIB CITRATE
     Dosage: 10 MG
     Dates: start: 20201201
  4. XELJANZ [Suspect]
     Active Substance: TOFACITINIB CITRATE
     Dosage: 10 MG, 2X/DAY

REACTIONS (15)
  - Loss of consciousness [Unknown]
  - Glaucoma [Unknown]
  - Colitis ulcerative [Unknown]
  - Acute haemorrhagic ulcerative colitis [Unknown]
  - Product dose omission issue [Unknown]
  - Off label use [Unknown]
  - Intentional product misuse [Unknown]
  - Confusional state [Unknown]
  - Memory impairment [Unknown]
  - High density lipoprotein increased [Unknown]
  - Tooth infection [Unknown]
  - Tooth loss [Unknown]
  - Tooth fracture [Unknown]
  - Nervousness [Unknown]
  - Drug effective for unapproved indication [Unknown]

NARRATIVE: CASE EVENT DATE: 20201105
